FAERS Safety Report 4900004-6 (Version None)
Quarter: 2006Q1

REPORT INFORMATION
  Report Type: 
  Country: None (occurrence: None)
  Receive Date: 20060203
  Receipt Date: 20060110
  Transmission Date: 20060701
  Serious: Yes (Other)
  Sender: FDA-Public Use
  Company Number: PHBS2006JP00807

PATIENT
  Sex: Female

DRUGS (2)
  1. CYCLOSPORINE [Suspect]
     Indication: APLASTIC ANAEMIA
     Route: 065
  2. MULTITHERAPY (UNSPECIFIED) [Concomitant]

REACTIONS (1)
  - PLEURAL EFFUSION [None]
